FAERS Safety Report 7551890-5 (Version None)
Quarter: 2011Q2

REPORT INFORMATION
  Report Type: 
  Country: None (occurrence: None)
  Receive Date: 20110616
  Receipt Date: 20110607
  Transmission Date: 20111010
  Serious: Yes (Hospitalization)
  Sender: FDA-Public Use
  Company Number: SE-ASTRAZENECA-2011SE35943

PATIENT
  Age: 29855 Day
  Sex: Female

DRUGS (16)
  1. ZOPICLONE [Concomitant]
     Route: 048
  2. FERROUS SULFATE TAB [Concomitant]
     Route: 048
  3. INSULINE ASPART [Concomitant]
  4. ATACAND [Suspect]
     Indication: CARDIAC FAILURE
     Route: 048
     Dates: end: 20110501
  5. ACETAMINOPHEN [Concomitant]
     Route: 048
  6. WARFARIN SODIUM [Concomitant]
     Route: 048
  7. SIMVASTATIN [Concomitant]
     Route: 048
  8. INSULINE CLARGINE [Concomitant]
  9. SPIRONOLACTONE [Interacting]
     Indication: CARDIAC FAILURE
     Route: 048
     Dates: start: 20110126, end: 20110501
  10. OMEPRAZOLE [Concomitant]
     Route: 048
  11. DIGOXIN [Interacting]
     Indication: CARDIAC FAILURE
     Route: 048
     Dates: start: 20011019, end: 20110501
  12. METOPROLOL [Concomitant]
     Route: 048
  13. FUROSEMIDE [Concomitant]
     Route: 048
  14. CARBOMER [Concomitant]
     Route: 047
  15. ISOPTIN [Interacting]
     Indication: CARDIAC FAILURE
     Route: 048
     Dates: end: 20110501
  16. CYANOCOBALAMIN [Concomitant]
     Route: 048

REACTIONS (5)
  - RENAL FAILURE [None]
  - SOMNOLENCE [None]
  - DRUG INTERACTION [None]
  - FALL [None]
  - HYPERKALAEMIA [None]
